FAERS Safety Report 9062103 (Version 1)
Quarter: 2013Q1

REPORT INFORMATION
  Report Type: Spontaneous
  Country: IT (occurrence: IT)
  Receive Date: 20130129
  Receipt Date: 20130129
  Transmission Date: 20140127
  Serious: Yes (Other)
  Sender: FDA-Public Use
  Company Number: IT-TEVA-382369ISR

PATIENT
  Age: 53 Year
  Sex: Male

DRUGS (1)
  1. KETOPROFEN [Suspect]
     Indication: HEADACHE
     Dosage: 1 DOSAGE FORMS DAILY;
     Route: 048
     Dates: start: 20121016, end: 20121016

REACTIONS (3)
  - Dyspnoea [Recovering/Resolving]
  - Hyperhidrosis [Recovering/Resolving]
  - Pallor [Recovering/Resolving]
